FAERS Safety Report 6666426-0 (Version None)
Quarter: 2010Q1

REPORT INFORMATION
  Report Type: 
  Country: None (occurrence: None)
  Receive Date: 20100311
  Receipt Date: 20100326
  Transmission Date: 20100710
  Serious: Yes (Hospitalization)
  Sender: FDA-Public Use
  Company Number: ALL1-2010-01690

PATIENT
  Age: 82 Year
  Sex: Female

DRUGS (1)
  1. FOSRENOL [Suspect]
     Indication: HYPERPHOSPHATAEMIA
     Dosage: 500 MG, OTHER (WITH MEALS), ORAL
     Route: 048
     Dates: start: 20070401

REACTIONS (2)
  - BLOOD PRESSURE DECREASED [None]
  - HYPOVOLAEMIA [None]
